FAERS Safety Report 23519477 (Version 6)
Quarter: 2024Q2

REPORT INFORMATION
  Report Type: Report from Study
  Country: US (occurrence: US)
  Receive Date: 20240213
  Receipt Date: 20240424
  Transmission Date: 20240715
  Serious: Yes (Hospitalization, Other)
  Sender: FDA-Public Use
  Company Number: US-SA-SAC20240207001702

PATIENT
  Age: 56 Year
  Sex: Male

DRUGS (7)
  1. IMIGLUCERASE [Suspect]
     Active Substance: IMIGLUCERASE
     Indication: Gaucher^s disease
     Dosage: 2400 IU, QOW
     Route: 042
     Dates: start: 1991
  2. IMIGLUCERASE [Suspect]
     Active Substance: IMIGLUCERASE
     Dosage: 5200 IU, QOW
     Route: 042
     Dates: start: 19970702
  3. IMIGLUCERASE [Suspect]
     Active Substance: IMIGLUCERASE
     Dosage: 5000 IU, QOW
     Route: 042
     Dates: start: 20240103
  4. RASAGILINE [Concomitant]
     Active Substance: RASAGILINE\RASAGILINE MESYLATE
     Dosage: UNK
  5. GLYCOPYRROLATE [Concomitant]
     Active Substance: GLYCOPYRROLATE
     Dosage: UNK
  6. BACLOFEN [Concomitant]
     Active Substance: BACLOFEN
     Dosage: UNK
  7. TRAZODONE [Concomitant]
     Active Substance: TRAZODONE HYDROCHLORIDE
     Dosage: UNK

REACTIONS (5)
  - Parkinson^s disease [Unknown]
  - Syncope [Unknown]
  - Diplopia [Unknown]
  - Hypertension [Recovered/Resolved]
  - Dizziness [Recovered/Resolved]

NARRATIVE: CASE EVENT DATE: 20240131
